FAERS Safety Report 12982696 (Version 1)
Quarter: 2016Q4

REPORT INFORMATION
  Report Type: Spontaneous
  Country: BR (occurrence: BR)
  Receive Date: 20161129
  Receipt Date: 20161129
  Transmission Date: 20170207
  Serious: Yes (Other)
  Sender: FDA-Public Use
  Company Number: BR-GLAXOSMITHKLINE-BR2016GSK175320

PATIENT
  Sex: Female

DRUGS (1)
  1. NIQUITIN [Suspect]
     Active Substance: NICOTINE
     Indication: SMOKING CESSATION THERAPY
     Dosage: UNK
     Route: 062

REACTIONS (3)
  - Asphyxia [Unknown]
  - Dyspnoea [Unknown]
  - Hypersensitivity [Unknown]
